FAERS Safety Report 15644620 (Version 1)
Quarter: 2018Q4

REPORT INFORMATION
  Report Type: Spontaneous
  Country: US (occurrence: US)
  Receive Date: 20181121
  Receipt Date: 20181121
  Transmission Date: 20190205
  Serious: No
  Sender: FDA-Public Use
  Company Number: US-PFIZER INC-2018476253

PATIENT
  Sex: Female

DRUGS (2)
  1. EUCRISA [Suspect]
     Active Substance: CRISABOROLE
     Indication: ECZEMA
     Dosage: UNK
  2. EUCRISA [Suspect]
     Active Substance: CRISABOROLE
     Indication: DERMATITIS ATOPIC

REACTIONS (3)
  - Application site pain [Unknown]
  - Eczema [Unknown]
  - Drug ineffective [Unknown]
